FAERS Safety Report 11321132 (Version 1)
Quarter: 2015Q3

REPORT INFORMATION
  Report Type: Spontaneous
  Country: US (occurrence: US)
  Receive Date: 20150729
  Receipt Date: 20150729
  Transmission Date: 20151125
  Serious: No
  Sender: FDA-Public Use
  Company Number: US-ELI_LILLY_AND_COMPANY-US201507008372

PATIENT
  Age: 46 Year
  Sex: Female

DRUGS (5)
  1. HUMALOG [Suspect]
     Active Substance: INSULIN LISPRO
     Indication: LATENT AUTOIMMUNE DIABETES IN ADULTS
     Dosage: 15 U, BID
     Route: 065
     Dates: start: 2012
  2. HUMALOG [Suspect]
     Active Substance: INSULIN LISPRO
     Dosage: 11 U, QD
     Route: 065
     Dates: start: 2012
  3. HUMALOG [Suspect]
     Active Substance: INSULIN LISPRO
     Dosage: UNK, PRN
     Route: 065
     Dates: start: 2012
  4. HUMALOG [Suspect]
     Active Substance: INSULIN LISPRO
     Dosage: 7 U, OTHER
     Route: 065
     Dates: start: 2012
  5. METFORMIN [Concomitant]
     Active Substance: METFORMIN HYDROCHLORIDE
     Dosage: 1000 MG, BID

REACTIONS (3)
  - Drug dose omission [Unknown]
  - Injury associated with device [Unknown]
  - Underdose [Unknown]

NARRATIVE: CASE EVENT DATE: 20150722
